FAERS Safety Report 5625113-8 (Version None)
Quarter: 2008Q1

REPORT INFORMATION
  Report Type: 
  Country: None (occurrence: None)
  Receive Date: 20080213
  Receipt Date: 20070524
  Transmission Date: 20080703
  Serious: No
  Sender: FDA-Public Use
  Company Number: US-BOEHRINGER INGELHEIM GMBH, GERMANY-2007-BP-07073BP

PATIENT
  Age: 52 Year
  Sex: Female
  Weight: 98.9 kg

DRUGS (7)
  1. MELOXICAM [Suspect]
     Indication: ARTHRALGIA
     Route: 048
     Dates: start: 20051201, end: 20070518
  2. HYCOMINE [Concomitant]
  3. LEXAPRO [Concomitant]
     Dates: start: 20070212
  4. LUNESTA [Concomitant]
     Dates: start: 20061012
  5. RANITIDINE [Concomitant]
     Dates: start: 20040902
  6. WELLBUTRIN XL [Concomitant]
     Dates: start: 20060818
  7. TEARS AGAIN OINTMENT [Concomitant]
     Dates: start: 20051215

REACTIONS (4)
  - ABDOMINAL PAIN [None]
  - DIARRHOEA [None]
  - NAUSEA [None]
  - PANCREATITIS [None]
